FAERS Safety Report 21927127 (Version 3)
Quarter: 2025Q2

REPORT INFORMATION
  Report Type: Report from Study
  Country: US (occurrence: US)
  Receive Date: 20230130
  Receipt Date: 20250626
  Transmission Date: 20250716
  Serious: Yes (Other)
  Sender: NOVARTIS
  Company Number: US-002147023-NVSC2023US019496

PATIENT
  Sex: Female

DRUGS (1)
  1. TAFINLAR [Suspect]
     Active Substance: DABRAFENIB MESYLATE
     Indication: Neoplasm
     Dosage: 75 MG, QD
     Route: 048
     Dates: start: 201812

REACTIONS (5)
  - Brain neoplasm [Unknown]
  - Pain [Unknown]
  - Panic attack [Unknown]
  - Hiccups [Unknown]
  - Product distribution issue [Unknown]
